FAERS Safety Report 9630553 (Version 1)
Quarter: 2013Q4

REPORT INFORMATION
  Report Type: Report from Study
  Country: US (occurrence: US)
  Receive Date: 20131018
  Receipt Date: 20131018
  Transmission Date: 20140711
  Serious: Yes (Other)
  Sender: FDA-Public Use
  Company Number: PHEH2013US021285

PATIENT
  Age: 42 Year
  Sex: Female

DRUGS (10)
  1. TOBI PODHALER [Suspect]
     Indication: CYSTIC FIBROSIS
     Dosage: 112 MG, BID
     Dates: start: 20130807, end: 20130811
  2. CREON [Concomitant]
     Dosage: UNK
  3. ALBUTEROL [Concomitant]
     Dosage: UNK
  4. PROVENTIL [Concomitant]
     Dosage: UNK
  5. SERTRALINE [Concomitant]
     Dosage: UNK
  6. SPIRIVA [Concomitant]
     Dosage: UNK
  7. NASONEX [Concomitant]
     Dosage: UNK
  8. OMEPRAZOLE [Concomitant]
     Dosage: UNK
  9. AZITHROMYCIN [Concomitant]
     Dosage: UNK
  10. PREDNISONE [Concomitant]
     Dosage: UNK

REACTIONS (3)
  - Angina pectoris [Unknown]
  - Throat irritation [Unknown]
  - Wheezing [Unknown]
